FAERS Safety Report 9912929 (Version 2)
Quarter: 2014Q1

REPORT INFORMATION
  Report Type: Spontaneous
  Country: JP (occurrence: None)
  Receive Date: 20140214
  Receipt Date: 20140220
  Transmission Date: 20141002
  Serious: Yes (Hospitalization)
  Sender: FDA-Public Use
  Company Number: DSJ-2014-02509

PATIENT
  Age: 75 Year
  Sex: Male
  Weight: 41 kg

DRUGS (4)
  1. OLMETEC (OLMESARTAN MEDOXOMIL) (TABLET) (OLMESARTAN MEDOXOMIL) [Suspect]
     Indication: HYPERTENSION
     Dosage: 1 IN 1D
     Route: 048
     Dates: start: 20140129, end: 20140130
  2. PIROLACTON [Suspect]
     Indication: HYPERTENSION
     Dosage: 1 IN 1D
     Route: 048
     Dates: start: 20140129, end: 20140130
  3. NORVASC (AMLODIPINE BESILATE) (TABLET) (AMLODIPINE BESILATE) [Concomitant]
  4. NIFEDIPINE (NIFEDIPINE) (TABLET) (NIFEDIPINE) [Concomitant]

REACTIONS (3)
  - Blood pressure decreased [None]
  - Blood creatinine increased [None]
  - Renal ischaemia [None]
